FAERS Safety Report 8192191-4 (Version None)
Quarter: 2012Q1

REPORT INFORMATION
  Report Type: 
  Country: None (occurrence: None)
  Receive Date: 20120307
  Receipt Date: 20120223
  Transmission Date: 20120608
  Serious: Yes (Death, Hospitalization)
  Sender: FDA-Public Use
  Company Number: NL-ELI_LILLY_AND_COMPANY-NL201202001439

PATIENT
  Age: 31 Year
  Sex: Female

DRUGS (1)
  1. OLANZAPINE [Suspect]

REACTIONS (1)
  - CEREBRAL HAEMORRHAGE [None]
